FAERS Safety Report 8906933 (Version 1)
Quarter: 2012Q4

REPORT INFORMATION
  Report Type: 
  Country: US (occurrence: US)
  Receive Date: 20121113
  Receipt Date: 20121113
  Transmission Date: 20130627
  Serious: No
  Sender: FDA-Public Use
  Company Number: US-AMGEN-USASP2012010775

PATIENT
  Age: 61 Year
  Sex: Male
  Weight: 86.17 kg

DRUGS (6)
  1. ENBREL [Suspect]
     Indication: PRODUCT USED FOR UNKNOWN INDICATION
     Dosage: 50 mg, qwk
     Route: 058
  2. PREDNISONE [Concomitant]
     Dosage: 10 mg, UNK
  3. LISINOPRIL [Concomitant]
     Dosage: 10 mg, UNK
  4. SIMVASTATIN [Concomitant]
     Dosage: 10 mg, UNK
  5. GLIMEPIRIDE [Concomitant]
     Dosage: 1 mg, UNK
  6. ZOLPIDEM TARTRATE [Concomitant]
     Dosage: 6.25 mg, UNK

REACTIONS (1)
  - Rash macular [Recovered/Resolved]
